FAERS Safety Report 8168338-2 (Version None)
Quarter: 2012Q1

REPORT INFORMATION
  Report Type: 
  Country: None (occurrence: None)
  Receive Date: 20120227
  Receipt Date: 20120217
  Transmission Date: 20120608
  Serious: Yes (Disabling, Other)
  Sender: FDA-Public Use
  Company Number: US-MERCK-0911USA04323

PATIENT
  Age: 66 Year
  Sex: Female
  Weight: 66 kg

DRUGS (5)
  1. FOSAMAX [Suspect]
     Indication: OSTEOPOROSIS
     Route: 048
     Dates: start: 20050601, end: 20080401
  2. CALCIUM (UNSPECIFIED) [Concomitant]
     Route: 065
  3. LEVOTHYROXINE SODIUM [Concomitant]
     Route: 065
  4. LIPITOR [Concomitant]
     Route: 065
  5. ADVAIR DISKUS 100/50 [Concomitant]
     Route: 055

REACTIONS (30)
  - CARPAL TUNNEL SYNDROME [None]
  - EMPHYSEMA [None]
  - HIATUS HERNIA [None]
  - NON-HODGKIN'S LYMPHOMA [None]
  - PERIODONTAL DISEASE [None]
  - LYMPHADENOPATHY [None]
  - NODULE [None]
  - DENTAL CARIES [None]
  - PARAESTHESIA [None]
  - ORAL INFECTION [None]
  - HAEMORRHOIDS [None]
  - RICHTER'S SYNDROME [None]
  - DIVERTICULUM INTESTINAL [None]
  - KIDNEY FIBROSIS [None]
  - FATIGUE [None]
  - NEURALGIA [None]
  - SINUS HEADACHE [None]
  - PLEURAL EFFUSION [None]
  - LUNG NEOPLASM [None]
  - OSTEONECROSIS OF JAW [None]
  - ANXIETY [None]
  - BONE LOSS [None]
  - CATARACT [None]
  - PAIN IN JAW [None]
  - CONSTIPATION [None]
  - DEPRESSION [None]
  - OSTEOARTHRITIS [None]
  - GASTROOESOPHAGEAL REFLUX DISEASE [None]
  - URINARY INCONTINENCE [None]
  - ARTHRALGIA [None]
